FAERS Safety Report 13642370 (Version 1)
Quarter: 2017Q2

REPORT INFORMATION
  Report Type: Spontaneous
  Country: US (occurrence: US)
  Receive Date: 20170612
  Receipt Date: 20170612
  Transmission Date: 20170830
  Serious: Yes (Life-Threatening)
  Sender: FDA-Public Use
  Company Number: US-PFIZER INC-2017247848

PATIENT
  Age: 68 Year
  Sex: Male

DRUGS (1)
  1. BUPIVACAINE HCL [Suspect]
     Active Substance: BUPIVACAINE HYDROCHLORIDE
     Indication: INFILTRATION ANAESTHESIA
     Dosage: 7 ML, UNK (INFILTRATED PERIINCISIONALLY)

REACTIONS (1)
  - Paralysis recurrent laryngeal nerve [Recovered/Resolved]
